FAERS Safety Report 9769239 (Version 2)
Quarter: 2014Q2

REPORT INFORMATION
  Report Type: Spontaneous
  Country: US (occurrence: US)
  Receive Date: 20131218
  Receipt Date: 20140417
  Transmission Date: 20141212
  Serious: Yes (Hospitalization)
  Sender: FDA-Public Use
  Company Number: US-BAYER-2013-153100

PATIENT
  Age: 28 Year
  Sex: Female
  Weight: 45.35 kg

DRUGS (2)
  1. MIRENA [Suspect]
     Indication: CONTRACEPTION
     Dosage: 20 MCG/24HR, CONT
     Route: 015
     Dates: start: 20110517, end: 20110811
  2. PRILOSEC [Concomitant]
     Indication: DYSPEPSIA
     Dosage: UNK
     Dates: start: 2008

REACTIONS (8)
  - Embedded device [None]
  - Medical device complication [None]
  - Device difficult to use [None]
  - Injury [None]
  - Pain [None]
  - Emotional distress [None]
  - Pelvic pain [None]
  - Back pain [None]
